FAERS Safety Report 14929726 (Version 2)
Quarter: 2018Q2

REPORT INFORMATION
  Report Type: Report from Study
  Country: US (occurrence: US)
  Receive Date: 20180523
  Receipt Date: 20180530
  Transmission Date: 20180711
  Serious: Yes (Death, Other)
  Sender: FDA-Public Use
  Company Number: US-GILEAD-2018-0322259

PATIENT
  Age: 85 Year
  Sex: Female

DRUGS (1)
  1. AMBRISENTAN [Suspect]
     Active Substance: AMBRISENTAN
     Indication: PULMONARY ARTERIAL HYPERTENSION
     Dosage: 5 MG, QD
     Route: 065
     Dates: start: 20160202, end: 20180504

REACTIONS (7)
  - Hypertension [Fatal]
  - Epistaxis [Recovered/Resolved]
  - Blood sodium decreased [Recovered/Resolved]
  - Chronic obstructive pulmonary disease [Fatal]
  - Fatigue [Not Recovered/Not Resolved]
  - Blood magnesium decreased [Recovered/Resolved]
  - Lung neoplasm malignant [Fatal]

NARRATIVE: CASE EVENT DATE: 20180219
